FAERS Safety Report 5768926-4 (Version None)
Quarter: 2008Q2

REPORT INFORMATION
  Report Type: 
  Country: None (occurrence: None)
  Receive Date: 20080612
  Receipt Date: 20080314
  Transmission Date: 20081010
  Serious: No
  Sender: FDA-Public Use
  Company Number: US-ABBOTT-08P-163-0442797-00

PATIENT
  Sex: Female
  Weight: 64.468 kg

DRUGS (4)
  1. HUMIRA [Suspect]
     Indication: CROHN'S DISEASE
     Dosage: LOADING DOSE
     Route: 058
     Dates: start: 20061001, end: 20061201
  2. HUMIRA [Suspect]
     Route: 058
     Dates: start: 20070701, end: 20080101
  3. HUMIRA [Suspect]
     Route: 058
     Dates: start: 20080101
  4. PANTOPRAZOLE [Concomitant]
     Indication: CROHN'S DISEASE
     Route: 048
     Dates: start: 20070101

REACTIONS (3)
  - CROHN'S DISEASE [None]
  - INJECTION SITE IRRITATION [None]
  - PROCEDURAL COMPLICATION [None]
